FAERS Safety Report 9511695 (Version 1)
Quarter: 2013Q3

REPORT INFORMATION
  Report Type: Spontaneous
  Country: ES (occurrence: None)
  Receive Date: 20130906
  Receipt Date: 20130906
  Transmission Date: 20140515
  Serious: Yes (Hospitalization)
  Sender: FDA-Public Use
  Company Number: DSM-2013-00801

PATIENT
  Sex: 0

DRUGS (13)
  1. OLMETEC [Suspect]
     Indication: HYPERTENSION
     Dosage: 10 MG (10 MG, 1 IN 1 D), ORAL
     Route: 048
     Dates: start: 20130101, end: 20130426
  2. SEGURIL [Suspect]
     Indication: PRODUCT USED FOR UNKNOWN INDICATION
     Dosage: 160 MG (40 MG, 4  IN 1 D), ORAL
     Route: 048
     Dates: start: 20041022
  3. ALDACTONE [Suspect]
     Indication: PRODUCT USED FOR UNKNOWN INDICATION
     Dosage: 100 MG (100 MG, 1 IN 1 D), ORAL
     Route: 048
     Dates: start: 20090331
  4. ACTONEL (RISEDRONATE SODIUM) (RISEDRONATE SODIUM) [Concomitant]
  5. DIGOXIN (DIGOXIN) (DIGOXIN) [Concomitant]
  6. OMEPRAZOL (OMEPRAZOLE) (OMEPRAZOLE) [Concomitant]
  7. CARVEDILOL (CARVEDILOL) (CARVEDILOL) [Concomitant]
  8. DOLOCATIL (PARACETAMOL) (PARACETAMOL) [Concomitant]
  9. DUPHALAC (LACTULOSE) (LACTULOSE) [Concomitant]
  10. MYCOSTATIN (NYSTATIN) (NYSTATIN) [Concomitant]
  11. PLUSVENT ACCUHALER (FLUTICASONE PROPIONATE, SALMETEROL) (FLUTICASONLE PROPIONATE, SALMETEROL) [Concomitant]
  12. SINTROM (ACENOCOUMAROL) (ACENOCOUMAROL) [Concomitant]
  13. TERBASMIN TURBOHALER (TERBUTALINE SULFATE) (TERBUTALINE SULFATE) [Concomitant]

REACTIONS (2)
  - Hyponatraemia [None]
  - Drug interaction [None]
